FAERS Safety Report 4334834-9 (Version None)
Quarter: 2004Q2

REPORT INFORMATION
  Report Type: 
  Country: None (occurrence: None)
  Receive Date: 20040405
  Receipt Date: 20040319
  Transmission Date: 20050107
  Serious: Yes (Other)
  Sender: FDA-Public Use
  Company Number: 2004-02-1262

PATIENT
  Age: 72 Year
  Sex: Female
  Weight: 50 kg

DRUGS (14)
  1. CLARITIN [Suspect]
     Indication: NASOPHARYNGITIS
     Dosage: 10 MG QD ORAL
     Route: 048
     Dates: start: 20040215, end: 20040215
  2. CLARITIN [Suspect]
     Indication: RHINITIS ALLERGIC
     Dosage: 10 MG QD ORAL
     Route: 048
     Dates: start: 20040215, end: 20040215
  3. THEO-DUR [Concomitant]
  4. METOPROLOL TARTRATE [Concomitant]
  5. PURSENNID [Concomitant]
  6. MYONAL [Concomitant]
  7. MECOBALAMIN [Concomitant]
  8. HYALURONATE SODIUM [Concomitant]
  9. MYTEAR [Concomitant]
  10. PL (SALICYLAMIDE/CAFFEINE/PROMETHAZINE) [Concomitant]
  11. RESPLEN [Concomitant]
  12. POVIDONE IODINE [Concomitant]
  13. KETOPROFEN [Concomitant]
  14. DIAZEPAM [Concomitant]

REACTIONS (2)
  - DEAFNESS NEUROSENSORY [None]
  - SUDDEN HEARING LOSS [None]
